FAERS Safety Report 6958126-4 (Version None)
Quarter: 2010Q3

REPORT INFORMATION
  Report Type: 
  Country: None (occurrence: None)
  Receive Date: 20100831
  Receipt Date: 20100817
  Transmission Date: 20110219
  Serious: Yes (Hospitalization, Disabling)
  Sender: FDA-Public Use
  Company Number: GB-SANOFI-AVENTIS-2010SA049159

PATIENT
  Age: 41 Year
  Sex: Male

DRUGS (9)
  1. INDOMETHACIN [Suspect]
     Route: 065
  2. FUROSEMIDE [Suspect]
     Route: 065
  3. FUROSEMIDE [Suspect]
     Indication: RENAL DISORDER
     Route: 065
  4. RAMIPRIL [Suspect]
     Route: 065
  5. AMIODARONE [Concomitant]
     Route: 065
  6. BISOPROLOL FUMARATE [Concomitant]
     Route: 065
  7. METOLAZONE [Concomitant]
     Indication: FLUID RETENTION
     Route: 065
  8. SPIRONOLACTONE [Concomitant]
     Indication: FLUID RETENTION
     Route: 065
  9. WARFARIN SODIUM [Concomitant]
     Route: 065

REACTIONS (2)
  - DEAFNESS NEUROSENSORY [None]
  - RENAL FAILURE ACUTE [None]
